FAERS Safety Report 7350828-3 (Version None)
Quarter: 2011Q1

REPORT INFORMATION
  Report Type: 
  Country: None (occurrence: None)
  Receive Date: 20110314
  Receipt Date: 20110303
  Transmission Date: 20110831
  Serious: Yes (Death, Hospitalization)
  Sender: FDA-Public Use
  Company Number: US-JNJFOC-20110108023

PATIENT
  Sex: Male
  Weight: 88.45 kg

DRUGS (5)
  1. METFORMIN [Concomitant]
  2. STELARA [Suspect]
     Indication: PSORIASIS
     Dosage: RECEIVED A TOTAL OF THREE INJECTIONS.
     Route: 058
  3. FOLATE [Concomitant]
  4. METHOTREXATE [Concomitant]
  5. LANTUS [Concomitant]

REACTIONS (3)
  - GASTROINTESTINAL HAEMORRHAGE [None]
  - MYOCARDIAL INFARCTION [None]
  - DRUG EFFECT DECREASED [None]
